FAERS Safety Report 8119247-6 (Version None)
Quarter: 2011Q4

REPORT INFORMATION
  Report Type: 
  Country: None (occurrence: None)
  Receive Date: 20111227
  Receipt Date: 20111117
  Transmission Date: 20120403
  Serious: No
  Sender: FDA-Public Use
  Company Number: PHEH2011US05646

PATIENT
  Age: 50 Year
  Sex: Female

DRUGS (1)
  1. GILENYA [Suspect]
     Indication: MULTIPLE SCLEROSIS
     Dosage: 0.5 MG, QD, ORAL
     Route: 048
     Dates: start: 20110701

REACTIONS (6)
  - FEELING ABNORMAL [None]
  - PAIN IN EXTREMITY [None]
  - LETHARGY [None]
  - ASTHENIA [None]
  - VISION BLURRED [None]
  - FATIGUE [None]
